FAERS Safety Report 19417274 (Version 1)
Quarter: 2021Q2

REPORT INFORMATION
  Report Type: Spontaneous
  Country: US (occurrence: US)
  Receive Date: 20210615
  Receipt Date: 20210615
  Transmission Date: 20210717
  Serious: Yes (Other)
  Sender: FDA-Public Use
  Company Number: US-GLAXOSMITHKLINE-US2021GSK122538

PATIENT
  Sex: Male

DRUGS (2)
  1. ZANTAC [Suspect]
     Active Substance: RANITIDINE HYDROCHLORIDE
     Indication: GALLBLADDER OPERATION
     Dosage: UNKNOWN AT THIS TIME, QD
     Dates: start: 199411, end: 200001
  2. ZANTAC [Suspect]
     Active Substance: RANITIDINE HYDROCHLORIDE
     Indication: GALLBLADDER OPERATION
     Dosage: UNKNOWN AT THIS TIME, QD
     Dates: start: 199411, end: 200001

REACTIONS (1)
  - Prostate cancer [Unknown]
